FAERS Safety Report 14352246 (Version 2)
Quarter: 2018Q1

REPORT INFORMATION
  Report Type: Spontaneous
  Country: US (occurrence: US)
  Receive Date: 20180104
  Receipt Date: 20180207
  Transmission Date: 20180509
  Serious: No
  Sender: FDA-Public Use
  Company Number: US-009507513-1712USA003304

PATIENT
  Age: 22 Year
  Sex: Female
  Weight: 53.06 kg

DRUGS (1)
  1. NEXPLANON [Suspect]
     Active Substance: ETONOGESTREL
     Dosage: 1 ROD IN LEFT ARM
     Route: 059
     Dates: start: 20171201

REACTIONS (11)
  - Device breakage [Unknown]
  - Product quality issue [Unknown]
  - Contusion [Not Recovered/Not Resolved]
  - Implant site swelling [Unknown]
  - Device kink [Unknown]
  - Implant site erythema [Unknown]
  - Limb discomfort [Unknown]
  - Implant site pain [Unknown]
  - Implant site hypersensitivity [Unknown]
  - Yellow skin [Unknown]
  - Device deployment issue [Not Recovered/Not Resolved]

NARRATIVE: CASE EVENT DATE: 201712
